FAERS Safety Report 8450546-4 (Version None)
Quarter: 2012Q2

REPORT INFORMATION
  Report Type: 
  Country: None (occurrence: None)
  Receive Date: 20120614
  Receipt Date: 20120614
  Transmission Date: 20120825
  Serious: Yes (Life-Threatening, Hospitalization, Disabling)
  Sender: FDA-Public Use
  Company Number: None

PATIENT
  Age: 50 Year
  Sex: Female
  Weight: 47.6277 kg

DRUGS (2)
  1. FLUOROURACIL [Suspect]
     Indication: PROPHYLAXIS
     Dosage: APPLY TO UPPER ARMS 2X'S A DAY
     Route: 061
     Dates: start: 20091004, end: 20091014
  2. FLUOROURACIL [Suspect]
     Indication: SKIN CANCER
     Dosage: APPLY TO UPPER ARMS 2X'S A DAY
     Route: 061
     Dates: start: 20091004, end: 20091014

REACTIONS (15)
  - OESOPHAGEAL PAIN [None]
  - DIARRHOEA [None]
  - JOINT SWELLING [None]
  - LOSS OF EMPLOYMENT [None]
  - VIRAL INFECTION [None]
  - MUSCULAR WEAKNESS [None]
  - ANAPHYLACTIC REACTION [None]
  - INFLUENZA LIKE ILLNESS [None]
  - LIP SWELLING [None]
  - URTICARIA [None]
  - DYSPHONIA [None]
  - NAUSEA [None]
  - PAIN IN EXTREMITY [None]
  - PYREXIA [None]
  - OESOPHAGEAL OEDEMA [None]
